FAERS Safety Report 11881446 (Version 1)
Quarter: 2015Q4

REPORT INFORMATION
  Report Type: Spontaneous
  Country: CA (occurrence: CA)
  Receive Date: 20151231
  Receipt Date: 20151231
  Transmission Date: 20160305
  Serious: Yes (Other)
  Sender: FDA-Public Use
  Company Number: CA-009507513-1510KHM008994

PATIENT
  Age: 61 Year
  Sex: Female

DRUGS (13)
  1. RIBAVIRIN. [Suspect]
     Active Substance: RIBAVIRIN
     Dosage: 400 MG, BID
     Route: 048
     Dates: start: 20120612
  2. PEGASYS [Suspect]
     Active Substance: PEGINTERFERON ALFA-2A
     Dosage: 135 MICROGRAM, ONCE WEEKLY
     Route: 058
     Dates: start: 20120612
  3. SOFOSBUVIR [Suspect]
     Active Substance: SOFOSBUVIR
     Indication: HEPATITIS C
     Dosage: 400 MG, ONCE A DAY
     Route: 048
     Dates: start: 20150501
  4. BOCEPREVIR [Suspect]
     Active Substance: BOCEPREVIR
     Indication: HEPATITIS C
     Dosage: 800 MG,THRICE A DAY
     Route: 048
     Dates: start: 20120622
  5. RIBAVIRIN. [Suspect]
     Active Substance: RIBAVIRIN
     Dosage: 2 IN 1 DAY
     Route: 048
     Dates: start: 20120525
  6. PEGASYS [Suspect]
     Active Substance: PEGINTERFERON ALFA-2A
     Dosage: 90 MICROGRAM, ONCE WEEKLY
     Route: 058
     Dates: start: 20120626, end: 20131114
  7. RIBAVIRIN. [Suspect]
     Active Substance: RIBAVIRIN
     Dosage: 600 MG, QAM
     Route: 048
     Dates: start: 20150501
  8. RIBAVIRIN. [Suspect]
     Active Substance: RIBAVIRIN
     Dosage: 200 MG, QAM
     Route: 048
     Dates: start: 20150520
  9. RIBAVIRIN. [Suspect]
     Active Substance: RIBAVIRIN
     Dosage: 400 MG, HS
     Route: 048
     Dates: start: 20150520
  10. RIBAVIRIN. [Suspect]
     Active Substance: RIBAVIRIN
     Dosage: 200MG IN MORNING AND 400MG BEFORE BED, BID
     Route: 048
     Dates: start: 20120704
  11. PEGASYS [Suspect]
     Active Substance: PEGINTERFERON ALFA-2A
     Dosage: 180 MICROGRAM, ONCE WEEKLY
     Route: 058
     Dates: start: 20120525
  12. PEGASYS [Suspect]
     Active Substance: PEGINTERFERON ALFA-2A
     Indication: HEPATITIS C
     Dosage: 180 MICROGRAM, ONCE WEEKLY
     Route: 058
     Dates: start: 20150501
  13. RIBAVIRIN. [Suspect]
     Active Substance: RIBAVIRIN
     Dosage: 400 MG, HS
     Route: 048
     Dates: start: 20150501

REACTIONS (22)
  - Renal colic [Unknown]
  - Haematocrit decreased [Unknown]
  - Red blood cell count decreased [Unknown]
  - Neutrophil count decreased [Unknown]
  - Gastrooesophageal reflux disease [Unknown]
  - Dysuria [Unknown]
  - Haemoglobin decreased [Unknown]
  - Platelet count decreased [Unknown]
  - Bone pain [Unknown]
  - Alanine aminotransferase increased [Unknown]
  - Blood thyroid stimulating hormone decreased [Unknown]
  - Haemoglobin decreased [Unknown]
  - Fatigue [Unknown]
  - Pollakiuria [Unknown]
  - Viral load increased [Unknown]
  - White blood cell count decreased [Unknown]
  - Dizziness [Unknown]
  - Platelet count decreased [Unknown]
  - Urinary tract infection [Unknown]
  - White blood cell count decreased [Unknown]
  - Neutrophil count decreased [Unknown]
  - Red blood cell count decreased [Unknown]

NARRATIVE: CASE EVENT DATE: 20120605
